FAERS Safety Report 12777444 (Version 1)
Quarter: 2016Q3

REPORT INFORMATION
  Report Type: Spontaneous
  Country: US (occurrence: US)
  Receive Date: 20160924
  Receipt Date: 20160924
  Transmission Date: 20161109
  Serious: No
  Sender: FDA-Public Use
  Company Number: US-TEVA-640490USA

PATIENT
  Sex: Female

DRUGS (1)
  1. CARBAMAZEPINE. [Suspect]
     Active Substance: CARBAMAZEPINE
     Indication: TRIGEMINAL NEURALGIA
     Dosage: 100MG 1/2 TABLET DAILY
     Route: 065
     Dates: start: 2013, end: 2013

REACTIONS (3)
  - Depression [Unknown]
  - Lethargy [Unknown]
  - Head discomfort [Unknown]

NARRATIVE: CASE EVENT DATE: 2013
